FAERS Safety Report 14752898 (Version 1)
Quarter: 2018Q2

REPORT INFORMATION
  Report Type: Spontaneous
  Country: IT (occurrence: IT)
  Receive Date: 20180412
  Receipt Date: 20180412
  Transmission Date: 20180711
  Serious: Yes (Hospitalization)
  Sender: FDA-Public Use
  Company Number: IT-TEVA-2018-IT-880728

PATIENT
  Age: 70 Year
  Sex: Female

DRUGS (3)
  1. TRIATEC (RAMIPRIL) [Concomitant]
     Active Substance: RAMIPRIL
  2. MIRTAZAPINE. [Concomitant]
     Active Substance: MIRTAZAPINE
  3. SIMVASTATIN. [Suspect]
     Active Substance: SIMVASTATIN
     Indication: HYPERCHOLESTEROLAEMIA
     Route: 048

REACTIONS (2)
  - Cholecystitis acute [Unknown]
  - Pancreatitis acute [Unknown]
